FAERS Safety Report 11531879 (Version 7)
Quarter: 2016Q1

REPORT INFORMATION
  Report Type: Spontaneous
  Country: US (occurrence: US)
  Receive Date: 20150921
  Receipt Date: 20160128
  Transmission Date: 20160525
  Serious: Yes (Other)
  Sender: FDA-Public Use
  Company Number: US-009507513-1509USA007713

PATIENT
  Age: 21 Year
  Sex: Female
  Weight: 69.84 kg

DRUGS (2)
  1. IRON (UNSPECIFIED) (+) MINERALS (UNSPECIFIED) (+) VITAMINS (UNSPECIFIE [Concomitant]
     Active Substance: IRON\MINERALS\VITAMINS
     Dosage: 1 TABLET DAILY
     Route: 048
  2. NEXPLANON [Suspect]
     Active Substance: ETONOGESTREL
     Indication: CONTRACEPTION
     Dosage: UNK
     Route: 059
     Dates: start: 20150505

REACTIONS (2)
  - Exposure during pregnancy [Recovering/Resolving]
  - Foetal death [Unknown]

NARRATIVE: CASE EVENT DATE: 20150930
